FAERS Safety Report 15151805 (Version 1)
Quarter: 2018Q3

REPORT INFORMATION
  Report Type: Report from Study
  Country: US (occurrence: US)
  Receive Date: 20180716
  Receipt Date: 20180716
  Transmission Date: 20181010
  Serious: Yes (Hospitalization, Other)
  Sender: FDA-Public Use
  Company Number: US-BEH-2018092686

PATIENT
  Age: 28 Year
  Sex: Female

DRUGS (10)
  1. BLINDED ALBUMIN 5% [Suspect]
     Active Substance: ALBUMIN HUMAN
     Dosage: UNK
     Route: 042
  2. CYTOGAM [Suspect]
     Active Substance: HUMAN CYTOMEGALOVIRUS IMMUNE GLOBULIN
     Indication: INFECTION PROPHYLAXIS
     Dosage: UNK
     Route: 042
  3. SYNTHROID [Concomitant]
     Active Substance: LEVOTHYROXINE SODIUM
     Indication: HYPOTHYROIDISM
     Route: 065
  4. CYTOGAM [Suspect]
     Active Substance: HUMAN CYTOMEGALOVIRUS IMMUNE GLOBULIN
     Indication: CYTOMEGALOVIRUS INFECTION
     Dosage: 185.4 ML, QMT
     Route: 042
     Dates: start: 20180129, end: 20180227
  5. BLINDED ALBUMIN 5% [Suspect]
     Active Substance: ALBUMIN HUMAN
     Indication: INFECTION PROPHYLAXIS
     Dosage: UNK
     Route: 042
  6. ALBUMINAR?5 [Suspect]
     Active Substance: ALBUMIN HUMAN
     Indication: INFECTION PROPHYLAXIS
     Dosage: UNK
     Route: 042
  7. CYTOGAM [Suspect]
     Active Substance: HUMAN CYTOMEGALOVIRUS IMMUNE GLOBULIN
     Dosage: UNK
     Route: 042
  8. BLINDED ALBUMIN 5% [Suspect]
     Active Substance: ALBUMIN HUMAN
     Indication: CYTOMEGALOVIRUS INFECTION
     Dosage: 185.4 ML, QMT
     Route: 042
     Dates: start: 20180129, end: 20180227
  9. ALBUMINAR?5 [Suspect]
     Active Substance: ALBUMIN HUMAN
     Dosage: UNK
     Route: 042
  10. ALBUMINAR?5 [Suspect]
     Active Substance: ALBUMIN HUMAN
     Indication: CYTOMEGALOVIRUS INFECTION
     Dosage: 185.4 ML, QMT
     Route: 042
     Dates: start: 20180129, end: 20180227

REACTIONS (2)
  - Gestational hypertension [Unknown]
  - Premature delivery [Unknown]

NARRATIVE: CASE EVENT DATE: 2018
